FAERS Safety Report 18443417 (Version 1)
Quarter: 2020Q4

REPORT INFORMATION
  Report Type: Spontaneous
  Country: US (occurrence: US)
  Receive Date: 20201030
  Receipt Date: 20201030
  Transmission Date: 20210114
  Serious: No
  Sender: FDA-Public Use
  Company Number: US-TARO-2020TAR01493

PATIENT

DRUGS (1)
  1. TRETINOIN. [Suspect]
     Active Substance: TRETINOIN
     Indication: PIGMENTATION DISORDER
     Dosage: UNK
     Route: 061

REACTIONS (1)
  - Off label use [Unknown]
